FAERS Safety Report 5779686-5 (Version None)
Quarter: 2008Q2

REPORT INFORMATION
  Report Type: 
  Country: None (occurrence: None)
  Receive Date: 20080619
  Receipt Date: 20080613
  Transmission Date: 20081010
  Serious: Yes (Disabling, Other)
  Sender: FDA-Public Use
  Company Number: US-MERCK-0705USA02839

PATIENT
  Age: 49 Year
  Sex: Female
  Weight: 64 kg

DRUGS (2)
  1. FOSAMAX [Suspect]
     Indication: OSTEOPOROSIS
     Route: 048
     Dates: start: 20031105, end: 20050901
  2. FOSAMAX [Suspect]
     Indication: OSTEOPENIA
     Route: 048
     Dates: start: 20031105, end: 20050901

REACTIONS (30)
  - ABDOMINAL PAIN LOWER [None]
  - ABSCESS [None]
  - ANXIETY [None]
  - BACK INJURY [None]
  - BONE DISORDER [None]
  - DENTAL CARIES [None]
  - DEPENDENCE [None]
  - DEPRESSION [None]
  - GINGIVAL BLEEDING [None]
  - HYPERTENSION [None]
  - JAW DISORDER [None]
  - JOINT SPRAIN [None]
  - MUSCLE SPASMS [None]
  - ORAL INFECTION [None]
  - ORAL PAIN [None]
  - OTORRHOEA [None]
  - PAIN [None]
  - PAIN IN JAW [None]
  - PALPITATIONS [None]
  - PANCREATITIS ACUTE [None]
  - SINUS CONGESTION [None]
  - SINUSITIS [None]
  - SPINAL DEFORMITY [None]
  - SPINAL DISORDER [None]
  - TEMPOROMANDIBULAR JOINT SYNDROME [None]
  - TOOTH LOSS [None]
  - TRISMUS [None]
  - URINARY TRACT DISORDER [None]
  - VAGINAL HAEMORRHAGE [None]
  - VISION BLURRED [None]
